FAERS Safety Report 17083973 (Version 1)
Quarter: 2019Q4

REPORT INFORMATION
  Report Type: Spontaneous
  Country: IT (occurrence: IT)
  Receive Date: 20191127
  Receipt Date: 20191127
  Transmission Date: 20200122
  Serious: Yes (Death, Other)
  Sender: FDA-Public Use
  Company Number: NVSC2019IT047265

PATIENT
  Age: 36 Year
  Sex: Female

DRUGS (1)
  1. CEFTRIAXONE. [Suspect]
     Active Substance: CEFTRIAXONE
     Indication: TONSILLITIS
     Dosage: 1 DF, TOTAL, ONCE/SINGLE
     Route: 030
     Dates: start: 20120213, end: 20120213

REACTIONS (4)
  - Cardiac arrest [Fatal]
  - Syncope [Fatal]
  - Dyspnoea [Fatal]
  - Foaming at mouth [Fatal]

NARRATIVE: CASE EVENT DATE: 20120213
